FAERS Safety Report 22351769 (Version 1)
Quarter: 2023Q2

REPORT INFORMATION
  Report Type: Spontaneous
  Country: US (occurrence: None)
  Receive Date: 20230522
  Receipt Date: 20230522
  Transmission Date: 20230721
  Serious: No
  Sender: FDA-Public Use
  Company Number: None

PATIENT

DRUGS (4)
  1. PYRIDOXINE HYDROCHLORIDE [Suspect]
     Active Substance: PYRIDOXINE HYDROCHLORIDE
     Indication: Orthostatic hypotension
  2. PYRIDOXINE HYDROCHLORIDE [Suspect]
     Active Substance: PYRIDOXINE HYDROCHLORIDE
     Indication: Congenital myasthenic syndrome
  3. SORAFENIB TOSYLATE [Suspect]
     Active Substance: SORAFENIB TOSYLATE
  4. PYRIDOSTIGMINE [Suspect]
     Active Substance: PYRIDOSTIGMINE

REACTIONS (10)
  - Palmar-plantar erythrodysaesthesia syndrome [None]
  - Product prescribing error [None]
  - Wrong product administered [None]
  - Abdominal pain [None]
  - Diarrhoea [None]
  - Asthenia [None]
  - Dizziness [None]
  - Dysarthria [None]
  - Product packaging confusion [None]
  - Product name confusion [None]
